FAERS Safety Report 7368596-8 (Version None)
Quarter: 2011Q1

REPORT INFORMATION
  Report Type: 
  Country: None (occurrence: None)
  Receive Date: 20110314
  Receipt Date: 20110301
  Transmission Date: 20110831
  Serious: Yes (Life-Threatening, Hospitalization, Other)
  Sender: FDA-Public Use
  Company Number: FK201100338

PATIENT
  Age: 29 Year
  Sex: Female

DRUGS (1)
  1. OXYTOCIN INJECTION, USP (OXYTOCIN) (OXYTOCIN) [Suspect]
     Indication: UTERINE CONTRACTIONS ABNORMAL
     Dosage: 10 IU, IN 300ML LACTATED RINGERS OVER 2 MIN, INTRAVENOUS
     Route: 042

REACTIONS (4)
  - HYPOTENSION [None]
  - HEART RATE INCREASED [None]
  - OPERATIVE HAEMORRHAGE [None]
  - HYPOXIA [None]
